FAERS Safety Report 4572282-7 (Version None)
Quarter: 2005Q1

REPORT INFORMATION
  Report Type: 
  Country: None (occurrence: None)
  Receive Date: 20050203
  Receipt Date: 20050120
  Transmission Date: 20050727
  Serious: Yes (Hospitalization)
  Sender: FDA-Public Use
  Company Number: 2005SE00389

PATIENT
  Age: 50 Year
  Sex: Male

DRUGS (2)
  1. CRESTOR [Suspect]
     Dosage: 10 MG DAILY PO
     Route: 048
     Dates: start: 20040101, end: 20050101
  2. LISINOPRIL [Concomitant]

REACTIONS (3)
  - OEDEMA PERIPHERAL [None]
  - PYELONEPHRITIS ACUTE [None]
  - RHABDOMYOLYSIS [None]
